FAERS Safety Report 24152371 (Version 2)
Quarter: 2024Q4

REPORT INFORMATION
  Report Type: Spontaneous
  Country: US (occurrence: US)
  Receive Date: 20240730
  Receipt Date: 20241104
  Transmission Date: 20250114
  Serious: No
  Sender: PFIZER
  Company Number: US-PFIZER INC-PV202400098465

PATIENT
  Age: 74 Year
  Sex: Female

DRUGS (1)
  1. IBRANCE [Suspect]
     Active Substance: PALBOCICLIB
     Dosage: 100 MG, TAKE ONCE DAILY 1-21 THEN 7 DAYS OFF
     Dates: start: 202402

REACTIONS (2)
  - Illness [Unknown]
  - Nasopharyngitis [Unknown]
